FAERS Safety Report 4365874-1 (Version None)
Quarter: 2004Q2

REPORT INFORMATION
  Report Type: 
  Country: None (occurrence: None)
  Receive Date: 20040524
  Receipt Date: 20040324
  Transmission Date: 20050107
  Serious: No
  Sender: FDA-Public Use
  Company Number: SU-2004-002252

PATIENT
  Age: 36 Year
  Sex: Male
  Weight: 89.8122 kg

DRUGS (2)
  1. BENICAR [Suspect]
     Indication: HYPERTENSION
     Dosage: 40 MG QD PO
     Route: 048
     Dates: start: 20031101, end: 20040115
  2. WELCHOL [Concomitant]

REACTIONS (1)
  - ERECTILE DYSFUNCTION [None]
